FAERS Safety Report 7538286-7 (Version None)
Quarter: 2011Q2

REPORT INFORMATION
  Report Type: 
  Country: None (occurrence: None)
  Receive Date: 20110609
  Receipt Date: 20031219
  Transmission Date: 20111010
  Serious: Yes (Death, Other)
  Sender: FDA-Public Use
  Company Number: PHFR2002IE04065

PATIENT
  Sex: Male

DRUGS (2)
  1. CLOZAPINE [Suspect]
     Indication: SCHIZOPHRENIA
     Dosage: 350MG/DAY
     Dates: start: 20010814
  2. CLOZAPINE [Suspect]
     Dosage: 650MG/DAY
     Route: 048

REACTIONS (2)
  - DRUG LEVEL INCREASED [None]
  - DEATH [None]
